FAERS Safety Report 6490166-4 (Version None)
Quarter: 2009Q4

REPORT INFORMATION
  Report Type: 
  Country: None (occurrence: None)
  Receive Date: 20091211
  Receipt Date: 20090928
  Transmission Date: 20100525
  Serious: No
  Sender: FDA-Public Use
  Company Number: A0805995A

PATIENT
  Age: 54 Year
  Sex: Female

DRUGS (6)
  1. FLONASE [Suspect]
     Dosage: 2SPR PER DAY
     Route: 045
     Dates: start: 20020101, end: 20090601
  2. ALAMAST [Concomitant]
  3. ULTRAM [Concomitant]
  4. PROTONIX [Concomitant]
  5. SYNTHROID [Concomitant]
  6. LIPITOR [Concomitant]

REACTIONS (3)
  - PRURITUS [None]
  - SKIN EXFOLIATION [None]
  - THROAT IRRITATION [None]
